FAERS Safety Report 5773464-9 (Version None)
Quarter: 2008Q2

REPORT INFORMATION
  Report Type: 
  Country: None (occurrence: None)
  Receive Date: 20080616
  Receipt Date: 20080515
  Transmission Date: 20081010
  Serious: No
  Sender: FDA-Public Use
  Company Number: US-BAYER-200715705NA

PATIENT
  Sex: Male

DRUGS (6)
  1. AVELOX [Suspect]
     Indication: SINUSITIS
     Dosage: TOTAL DAILY DOSE: 400 MG  UNIT DOSE: 400 MG
     Route: 048
     Dates: start: 20071201, end: 20071201
  2. METHYLPREDNISOLONE [Concomitant]
     Indication: SINUSITIS
     Route: 048
  3. ALLEGRA [Concomitant]
     Indication: SINUSITIS
     Route: 048
  4. NASONEX [Concomitant]
     Indication: SINUSITIS
     Dosage: TOTAL DAILY DOSE: 4 DF
     Route: 045
  5. ASPIRIN [Concomitant]
  6. MULTI-VITAMIN [Concomitant]

REACTIONS (3)
  - MUSCLE FATIGUE [None]
  - MUSCULAR WEAKNESS [None]
  - TENDONITIS [None]
